FAERS Safety Report 14994623 (Version 2)
Quarter: 2018Q3

REPORT INFORMATION
  Report Type: Spontaneous
  Country: CA (occurrence: CA)
  Receive Date: 20180611
  Receipt Date: 20180710
  Transmission Date: 20181010
  Serious: Yes (Hospitalization, Other)
  Sender: FDA-Public Use
  Company Number: CA-BEH-2018091315

PATIENT
  Age: 4 Year
  Sex: Male
  Weight: 19.1 kg

DRUGS (4)
  1. METHYLPREDNISOLONE. [Concomitant]
     Active Substance: METHYLPREDNISOLONE
     Dosage: 12.5 MG, UNK
     Route: 065
     Dates: start: 20180123
  2. ASA [Concomitant]
     Active Substance: ASPIRIN
     Dosage: 800 MG, OD
     Route: 048
  3. HUMAN IMMUNOGLOBULIN (NC) [Suspect]
     Active Substance: HUMAN IMMUNOGLOBULIN G
     Dosage: 2G/KG
     Route: 042
     Dates: end: 20180124
  4. HUMAN IMMUNOGLOBULIN (NC) [Suspect]
     Active Substance: HUMAN IMMUNOGLOBULIN G
     Indication: KAWASAKI^S DISEASE
     Dosage: 2G/KG
     Route: 042
     Dates: start: 20180118, end: 20180119

REACTIONS (6)
  - Chills [Unknown]
  - Chromaturia [Unknown]
  - Drug ineffective [Unknown]
  - Hypotension [Unknown]
  - Pyrexia [Unknown]
  - Haemoglobin decreased [Unknown]

NARRATIVE: CASE EVENT DATE: 20180121
